FAERS Safety Report 6839509-X (Version None)
Quarter: 2010Q3

REPORT INFORMATION
  Report Type: 
  Country: None (occurrence: None)
  Receive Date: 20100714
  Receipt Date: 20091116
  Transmission Date: 20110219
  Serious: No
  Sender: FDA-Public Use
  Company Number: A0814744A

PATIENT
  Age: 13 Year
  Sex: Female
  Weight: 39.5 kg

DRUGS (5)
  1. FLOVENT [Suspect]
     Indication: ASTHMA
     Route: 055
     Dates: start: 20091012, end: 20091026
  2. ALBUTEROL [Concomitant]
     Indication: ASTHMA
     Dosage: 2PUFF AS REQUIRED
     Route: 055
  3. SINGULAIR [Concomitant]
     Indication: ASTHMA
     Dosage: 5MG PER DAY
     Route: 048
  4. RHINOCORT [Concomitant]
     Route: 045
  5. LORATADINE [Concomitant]
     Dosage: 10MG PER DAY
     Route: 048

REACTIONS (3)
  - DRUG ADMINISTRATION ERROR [None]
  - HEADACHE [None]
  - VISUAL IMPAIRMENT [None]
